FAERS Safety Report 11951676 (Version 1)
Quarter: 2016Q1

REPORT INFORMATION
  Report Type: Spontaneous
  Country: VE (occurrence: VE)
  Receive Date: 20160126
  Receipt Date: 20160126
  Transmission Date: 20160526
  Serious: Yes (Other)
  Sender: FDA-Public Use
  Company Number: VE-PFIZER INC-2016032393

PATIENT
  Age: 85 Year
  Sex: Female

DRUGS (1)
  1. NEURONTIN [Suspect]
     Active Substance: GABAPENTIN

REACTIONS (5)
  - Feeling abnormal [Unknown]
  - Fall [Unknown]
  - Foot fracture [Unknown]
  - Feeling of body temperature change [Unknown]
  - Peripheral swelling [Unknown]
